FAERS Safety Report 4421671-X (Version None)
Quarter: 2004Q3

REPORT INFORMATION
  Report Type: 
  Country: None (occurrence: None)
  Receive Date: 20040804
  Receipt Date: 20040729
  Transmission Date: 20050211
  Serious: Yes (Hospitalization)
  Sender: FDA-Public Use
  Company Number: 200412420BCC

PATIENT
  Age: 61 Year
  Sex: Female
  Weight: 63.5036 kg

DRUGS (9)
  1. ALEVE [Suspect]
     Indication: PAIN IN EXTREMITY
     Dosage: 220 MG, ONCE, ORAL
     Route: 048
     Dates: start: 20040503
  2. DEPAKOTE [Concomitant]
  3. SEROQUEL [Concomitant]
  4. MIRTAZAPINE [Concomitant]
  5. AMBIEN [Concomitant]
  6. LORAZEPAM [Concomitant]
  7. IBUPROFEN [Concomitant]
  8. MULTIVITAMIN [Concomitant]
  9. RISPERDAL [Concomitant]

REACTIONS (2)
  - ANXIETY [None]
  - PAIN IN EXTREMITY [None]
